FAERS Safety Report 8133504-9 (Version None)
Quarter: 2012Q1

REPORT INFORMATION
  Report Type: 
  Country: None (occurrence: None)
  Receive Date: 20120213
  Receipt Date: 20120203
  Transmission Date: 20120608
  Serious: Yes (Other)
  Sender: FDA-Public Use
  Company Number: US-ABBOTT-12P-163-0901121-00

PATIENT
  Sex: Male

DRUGS (1)
  1. HUMIRA [Suspect]
     Indication: PSORIASIS
     Route: 058
     Dates: start: 20090901, end: 20120101

REACTIONS (5)
  - CENTRAL NERVOUS SYSTEM LESION [None]
  - UPPER RESPIRATORY TRACT INFECTION [None]
  - LUNG CANCER METASTATIC [None]
  - LUNG NEOPLASM [None]
  - HEPATIC LESION [None]
